FAERS Safety Report 5673363-7 (Version None)
Quarter: 2008Q1

REPORT INFORMATION
  Report Type: 
  Country: None (occurrence: None)
  Receive Date: 20080319
  Receipt Date: 20080128
  Transmission Date: 20080703
  Serious: Yes (Death)
  Sender: FDA-Public Use
  Company Number: US-TYCO HEALTHCARE/MALLINCKRODT-T200800328

PATIENT

DRUGS (7)
  1. TRAMADOL HCL [Suspect]
     Route: 048
  2. DILTIAZEM [Suspect]
     Route: 048
  3. VENLAFAXINE HCL [Suspect]
     Route: 048
  4. BUSPIRONE HCL [Suspect]
     Route: 048
  5. ALPRAZOLAM [Suspect]
     Route: 048
  6. ATORVASTATIN CALCIUM [Suspect]
     Route: 048
  7. NITROGLYCERIN [Suspect]
     Route: 048

REACTIONS (1)
  - COMPLETED SUICIDE [None]
